FAERS Safety Report 8360635-0 (Version None)
Quarter: 2012Q2

REPORT INFORMATION
  Report Type: 
  Country: None (occurrence: None)
  Receive Date: 20120515
  Receipt Date: 20120510
  Transmission Date: 20120825
  Serious: Yes (Death)
  Sender: FDA-Public Use
  Company Number: GR-ASTRAZENECA-2012SE30392

PATIENT
  Age: 80 Year
  Sex: Male

DRUGS (4)
  1. ESOMEPRAZOLE MAGNESIUM [Concomitant]
     Route: 042
  2. HALOPERIDOL [Concomitant]
     Route: 065
  3. QUETIAPINE [Suspect]
     Route: 048
  4. FONTAPARINUX [Concomitant]
     Route: 065

REACTIONS (4)
  - CEREBRAL HAEMORRHAGE [None]
  - PANCREATITIS ACUTE [None]
  - ACUTE RESPIRATORY DISTRESS SYNDROME [None]
  - RENAL FAILURE ACUTE [None]
